FAERS Safety Report 22362694 (Version 2)
Quarter: 2023Q2

REPORT INFORMATION
  Report Type: Report from Study
  Country: US (occurrence: US)
  Receive Date: 20230524
  Receipt Date: 20230601
  Transmission Date: 20230721
  Serious: Yes (Other)
  Sender: FDA-Public Use
  Company Number: US-BRISTOL-MYERS SQUIBB COMPANY-2023-069804

PATIENT
  Sex: Male

DRUGS (3)
  1. ABECMA [Suspect]
     Active Substance: IDECABTAGENE VICLEUCEL
     Indication: Plasma cell myeloma
  2. MAGNESIUM [Concomitant]
     Active Substance: MAGNESIUM
     Indication: Blood magnesium decreased
  3. NEUPOGEN [Concomitant]
     Active Substance: FILGRASTIM

REACTIONS (12)
  - Fatigue [Unknown]
  - Hypotension [Unknown]
  - Appetite disorder [Recovering/Resolving]
  - Gastrointestinal disorder [Unknown]
  - Heart rate increased [Unknown]
  - Bone lesion [Unknown]
  - Lymphopenia [Unknown]
  - Full blood count decreased [Unknown]
  - Immunodeficiency [Unknown]
  - Platelet count decreased [Unknown]
  - Boredom [Unknown]
  - Emotional distress [Unknown]
